FAERS Safety Report 9499147 (Version 2)
Quarter: 2013Q4

REPORT INFORMATION
  Report Type: Spontaneous
  Country: US (occurrence: US)
  Receive Date: 20130905
  Receipt Date: 20131126
  Transmission Date: 20140711
  Serious: No
  Sender: FDA-Public Use
  Company Number: US-009507513-1309USA001346

PATIENT
  Age: 80 Year
  Sex: Female
  Weight: 92.63 kg

DRUGS (5)
  1. COZAAR [Suspect]
     Indication: HYPERTENSION
     Dosage: UNK
     Route: 048
     Dates: start: 20130705, end: 20130715
  2. LISINOPRIL [Suspect]
     Dosage: UNK
     Route: 048
  3. HYZAAR [Suspect]
     Indication: HYPERTENSION
     Dosage: 100 MG/25 MG, QD
     Route: 048
     Dates: start: 20130108, end: 20130131
  4. ASPIRIN [Concomitant]
     Indication: PROPHYLAXIS
     Dosage: TOTAL DAILY DOSE 8 MG, TABLET
     Route: 048
  5. CLONIDINE [Concomitant]
     Indication: HYPERTENSION
     Dosage: TOTAL DAILY DOSE 0.1 MG
     Route: 048

REACTIONS (11)
  - Dysstasia [Unknown]
  - Gait disturbance [Unknown]
  - Blood pressure fluctuation [Unknown]
  - Pain in extremity [Recovered/Resolved]
  - Pain in extremity [Recovered/Resolved]
  - Abdominal discomfort [Unknown]
  - Abdominal pain upper [Unknown]
  - Muscle spasms [Recovered/Resolved]
  - Insomnia [Unknown]
  - Cough [Unknown]
  - Arthralgia [Recovered/Resolved]
